FAERS Safety Report 12820030 (Version 1)
Quarter: 2016Q4

REPORT INFORMATION
  Report Type: Spontaneous
  Country: US (occurrence: US)
  Receive Date: 20161006
  Receipt Date: 20161006
  Transmission Date: 20170207
  Serious: Yes (Other)
  Sender: FDA-Public Use
  Company Number: US-ASTRAZENECA-2016SF04640

PATIENT
  Age: 57 Year
  Sex: Male

DRUGS (2)
  1. IBRANCE [Suspect]
     Active Substance: PALBOCICLIB
     Dosage: 125.0MG UNKNOWN
     Route: 048
     Dates: start: 201602
  2. FASLODEX [Suspect]
     Active Substance: FULVESTRANT
     Indication: BREAST CANCER MALE
     Route: 030
     Dates: start: 201602

REACTIONS (1)
  - Malignant neoplasm progression [Unknown]
